FAERS Safety Report 4785032-6 (Version None)
Quarter: 2005Q3

REPORT INFORMATION
  Report Type: 
  Country: None (occurrence: None)
  Receive Date: 20050930
  Receipt Date: 20050921
  Transmission Date: 20060218
  Serious: Yes (Hospitalization)
  Sender: FDA-Public Use
  Company Number: FR-JNJFOC-20050905518

PATIENT
  Age: 81 Year
  Sex: Male
  Weight: 50 kg

DRUGS (12)
  1. RISPERDAL [Suspect]
     Indication: DRUG USE FOR UNKNOWN INDICATION
     Route: 048
     Dates: start: 20041222, end: 20050330
  2. REMINYL [Suspect]
     Route: 048
     Dates: start: 20041222, end: 20050330
  3. LASILIX [Suspect]
     Route: 048
     Dates: start: 20050204, end: 20050330
  4. EFFEXOR [Suspect]
     Indication: DRUG USE FOR UNKNOWN INDICATION
     Dosage: 2 CP  PER DAY
     Route: 048
     Dates: start: 20050314, end: 20050330
  5. EBIXA [Concomitant]
     Route: 065
  6. TRIATEC [Concomitant]
     Route: 065
  7. OMEPRAZOLE [Concomitant]
     Dosage: FOR SEVERAL YEARS
     Route: 065
  8. PLAVIX [Concomitant]
     Indication: ANTIPLATELET THERAPY
     Dosage: FOR SEVERAL YEARS
     Route: 065
  9. CORVASAL [Concomitant]
     Indication: ANGINA PECTORIS
     Dosage: FOR SEVERAL YEARS
     Route: 065
  10. ARCALION [Concomitant]
     Route: 065
  11. DIANTALVIC [Concomitant]
     Route: 065
  12. DIANTALVIC [Concomitant]
     Route: 065

REACTIONS (6)
  - BLOOD AMYLASE INCREASED [None]
  - CYTOLYTIC HEPATITIS [None]
  - DEHYDRATION [None]
  - GENERAL PHYSICAL CONDITION [None]
  - ORTHOSTATIC HYPOTENSION [None]
  - RENAL FAILURE [None]
